FAERS Safety Report 8237591-9 (Version None)
Quarter: 2012Q1

REPORT INFORMATION
  Report Type: 
  Country: None (occurrence: None)
  Receive Date: 20120323
  Receipt Date: 20120319
  Transmission Date: 20120608
  Serious: Yes (Death, Hospitalization)
  Sender: FDA-Public Use
  Company Number: DKLU1077549

PATIENT
  Age: 77 Year
  Sex: Male

DRUGS (6)
  1. PRECEDEX [Concomitant]
  2. VIMPAT [Concomitant]
  3. SABRIL [Suspect]
     Indication: COMPLEX PARTIAL SEIZURES
     Dosage: 500 MG MILLIGRAM(S), 2 IN 1 D, ORAL ; 1500 MG MILLIGRAM(S), 2 IN 1 D, ORAL
     Route: 048
     Dates: start: 20111228
  4. SABRIL [Suspect]
     Indication: COMPLEX PARTIAL SEIZURES
     Dosage: 500 MG MILLIGRAM(S), 2 IN 1 D, ORAL ; 1500 MG MILLIGRAM(S), 2 IN 1 D, ORAL
     Route: 048
     Dates: start: 20111212, end: 20111227
  5. XANAX [Concomitant]
  6. KEPPRA [Concomitant]

REACTIONS (4)
  - FALL [None]
  - SUBDURAL HAEMATOMA [None]
  - ANAEMIA [None]
  - CONVULSION [None]
